FAERS Safety Report 15681348 (Version 2)
Quarter: 2018Q4

REPORT INFORMATION
  Report Type: Spontaneous
  Country: US (occurrence: US)
  Receive Date: 20181203
  Receipt Date: 20181210
  Transmission Date: 20190205
  Serious: No
  Sender: FDA-Public Use
  Company Number: US-GLAXOSMITHKLINE-US2018216440

PATIENT
  Sex: Female

DRUGS (1)
  1. PREVACID 24 HR [Suspect]
     Active Substance: LANSOPRAZOLE
     Indication: PRODUCT USED FOR UNKNOWN INDICATION
     Dosage: UNK
     Dates: start: 201811

REACTIONS (7)
  - Vomiting [Unknown]
  - Recalled product administered [Unknown]
  - Medication error [Unknown]
  - Viral infection [Recovered/Resolved]
  - Gastroenteritis viral [Recovered/Resolved]
  - Pain in extremity [Recovered/Resolved]
  - Muscle spasms [Unknown]
